FAERS Safety Report 17701587 (Version 2)
Quarter: 2020Q2

REPORT INFORMATION
  Report Type: Spontaneous
  Country: HU (occurrence: HU)
  Receive Date: 20200423
  Receipt Date: 20200430
  Transmission Date: 20200714
  Serious: Yes (Other)
  Sender: FDA-Public Use
  Company Number: HU-PFIZER INC-2020161052

PATIENT
  Age: 52 Year
  Sex: Male

DRUGS (8)
  1. METHOTREXATE SODIUM. [Suspect]
     Active Substance: METHOTREXATE SODIUM
     Indication: BING-NEEL SYNDROME
  2. CYTARABINE. [Suspect]
     Active Substance: CYTARABINE
     Indication: BING-NEEL SYNDROME
  3. METHOTREXATE SODIUM. [Suspect]
     Active Substance: METHOTREXATE SODIUM
     Indication: WALDENSTROM^S MACROGLOBULINAEMIA
     Dosage: UNK, CYCLIC
     Route: 037
  4. CYTARABINE. [Suspect]
     Active Substance: CYTARABINE
     Indication: WALDENSTROM^S MACROGLOBULINAEMIA
     Dosage: UNK, CYCLIC
     Route: 037
  5. RITUXIMAB. [Suspect]
     Active Substance: RITUXIMAB
     Indication: WALDENSTROM^S MACROGLOBULINAEMIA
     Dosage: UNK, CYCLIC
     Route: 037
  6. RITUXIMAB. [Suspect]
     Active Substance: RITUXIMAB
     Indication: BING-NEEL SYNDROME
  7. DEXAMETHASONE. [Suspect]
     Active Substance: DEXAMETHASONE
     Indication: WALDENSTROM^S MACROGLOBULINAEMIA
     Dosage: UNK, CYCLIC
     Route: 037
  8. DEXAMETHASONE. [Suspect]
     Active Substance: DEXAMETHASONE
     Indication: BING-NEEL SYNDROME

REACTIONS (2)
  - Arachnoiditis [Unknown]
  - Condition aggravated [Unknown]
